FAERS Safety Report 9515278 (Version 1)
Quarter: 2013Q1

REPORT INFORMATION
  Report Type: Spontaneous
  Country: US (occurrence: None)
  Receive Date: 20130305
  Receipt Date: 20130305
  Transmission Date: 20140127
  Serious: Yes (Hospitalization)
  Sender: FDA-Public Use
  Company Number: 163-21880-12121478

PATIENT
  Age: 79 Year
  Sex: Female
  Weight: 71.8 kg

DRUGS (9)
  1. REVLIMID [Suspect]
     Indication: PLASMA CELL MYELOMA
     Dosage: 10 MG, 21 IN 28 D, PO
     Route: 048
     Dates: start: 20121128
  2. VELCADE [Suspect]
     Indication: PLASMA CELL MYELOMA
     Dosage: 1 MG, 1 IN 1 WK, SC
     Route: 058
  3. ALBUTEROL (SALBUTAMOL) (0.083 PERCENT) [Concomitant]
  4. AMLODIPINE (AMLODIPINE) (TABLETS) [Concomitant]
  5. ASPIRIN (ACETYLSALICYLIC ACID) (TABLETS) [Concomitant]
  6. BENSONATATE (BENZONATATE) (CAPSULES) [Concomitant]
  7. WARFARIN (WARFARIN) (TABLETS) [Concomitant]
  8. SPIRIVA (TIOTROPIUM BROMIDE) (CAPSULES) [Concomitant]
  9. ZOLEDRONIC ACID (ZOLEDRONIC ACID) (UNKNOWN) [Concomitant]

REACTIONS (1)
  - Herpes zoster [None]
